FAERS Safety Report 20339541 (Version 2)
Quarter: 2022Q1

REPORT INFORMATION
  Report Type: Other
  Country: PE (occurrence: None)
  Receive Date: 20220117
  Receipt Date: 20220307
  Transmission Date: 20220423
  Serious: Yes (Death)
  Sender: FDA-Public Use
  Company Number: PE-ROCHE-2896882

PATIENT
  Age: 64 Year

DRUGS (3)
  1. TECENTRIQ [Suspect]
     Active Substance: ATEZOLIZUMAB
     Indication: Lung neoplasm malignant
     Route: 042
     Dates: start: 20210528, end: 20211221
  2. AVASTIN [Suspect]
     Active Substance: BEVACIZUMAB
     Indication: Lung neoplasm malignant
     Route: 042
     Dates: start: 20210528
  3. AVASTIN [Suspect]
     Active Substance: BEVACIZUMAB
     Route: 042
     Dates: start: 20210528

REACTIONS (4)
  - Death [Fatal]
  - Pain [Unknown]
  - Pruritus [Unknown]
  - Somnolence [Unknown]

NARRATIVE: CASE EVENT DATE: 20210701
